FAERS Safety Report 13708776 (Version 1)
Quarter: 2017Q2

REPORT INFORMATION
  Report Type: Report from Study
  Country: US (occurrence: US)
  Receive Date: 20170630
  Receipt Date: 20170630
  Transmission Date: 20170830
  Serious: No
  Sender: FDA-Public Use
  Company Number: US-IPSEN BIOPHARMACEUTICALS, INC.-2015-6243

PATIENT
  Sex: Female

DRUGS (3)
  1. CABERGOLINE. [Concomitant]
     Active Substance: CABERGOLINE
  2. SOMATULINE DEPOT [Suspect]
     Active Substance: LANREOTIDE ACETATE
     Dosage: 120 MG
     Route: 058
     Dates: start: 2015
  3. SOMATULINE DEPOT [Suspect]
     Active Substance: LANREOTIDE ACETATE
     Indication: ACROMEGALY
     Dosage: 90 MG
     Route: 058
     Dates: start: 20140326, end: 2015

REACTIONS (8)
  - Joint swelling [Not Recovered/Not Resolved]
  - Memory impairment [Recovering/Resolving]
  - Disturbance in attention [Recovering/Resolving]
  - Headache [Recovering/Resolving]
  - Malaise [Not Recovered/Not Resolved]
  - Anxiety [Not Recovered/Not Resolved]
  - Arthralgia [Not Recovered/Not Resolved]
  - Pain [Recovering/Resolving]
